FAERS Safety Report 12657023 (Version 4)
Quarter: 2017Q1

REPORT INFORMATION
  Report Type: Spontaneous
  Country: JP (occurrence: JP)
  Receive Date: 20160816
  Receipt Date: 20170313
  Transmission Date: 20170428
  Serious: Yes (Other)
  Sender: FDA-Public Use
  Company Number: JP-GILEAD-2016-0227088

PATIENT
  Age: 69 Year
  Sex: Male
  Weight: 76 kg

DRUGS (2)
  1. HARVONI [Suspect]
     Active Substance: LEDIPASVIR\SOFOSBUVIR
     Indication: HEPATITIS C
     Dosage: 1 DF, QD
     Route: 048
     Dates: start: 20160713
  2. TAURIN [Concomitant]
     Indication: AMINO ACID LEVEL DECREASED
     Dosage: 3.06 DF, UNK
     Dates: start: 20160728

REACTIONS (5)
  - Road traffic accident [Unknown]
  - Tinnitus [Recovered/Resolved]
  - Petit mal epilepsy [Recovered/Resolved]
  - Dizziness [Recovered/Resolved]
  - Conjunctivitis allergic [Recovered/Resolved]

NARRATIVE: CASE EVENT DATE: 20160722
